FAERS Safety Report 14866890 (Version 1)
Quarter: 2018Q2

REPORT INFORMATION
  Report Type: Spontaneous
  Country: US (occurrence: US)
  Receive Date: 20180508
  Receipt Date: 20180508
  Transmission Date: 20180711
  Serious: No
  Sender: FDA-Public Use
  Company Number: US-ALKERMES INC.-ALK-2018-001268

PATIENT
  Age: 33 Year
  Sex: Male

DRUGS (1)
  1. VIVITROL [Suspect]
     Active Substance: NALTREXONE
     Indication: DRUG DEPENDENCE
     Dosage: 380 MG, QMO
     Route: 030
     Dates: start: 201712

REACTIONS (7)
  - Malaise [Unknown]
  - Decreased appetite [Unknown]
  - Hypophagia [Unknown]
  - Weight decreased [Unknown]
  - Diarrhoea [Unknown]
  - Major depression [Not Recovered/Not Resolved]
  - Urine abnormality [Unknown]
